FAERS Safety Report 13336034 (Version 1)
Quarter: 2017Q1

REPORT INFORMATION
  Report Type: Report from Study
  Country: US (occurrence: US)
  Receive Date: 20170314
  Receipt Date: 20170314
  Transmission Date: 20170428
  Serious: Yes (Hospitalization)
  Sender: FDA-Public Use
  Company Number: US-BAXALTA-2017BLT001814

PATIENT
  Sex: Male

DRUGS (1)
  1. GAMMAGARD LIQUID [Suspect]
     Active Substance: HUMAN IMMUNOGLOBULIN G
     Indication: PRIMARY IMMUNODEFICIENCY SYNDROME
     Route: 042

REACTIONS (6)
  - Amnesia [Unknown]
  - Cerebrospinal fluid leakage [Unknown]
  - Incorrect drug administration rate [Unknown]
  - Head injury [Unknown]
  - Headache [Unknown]
  - Impaired driving ability [Unknown]
